FAERS Safety Report 6697285-8 (Version None)
Quarter: 2010Q2

REPORT INFORMATION
  Report Type: 
  Country: None (occurrence: None)
  Receive Date: 20100426
  Receipt Date: 20100414
  Transmission Date: 20101027
  Serious: Yes (Hospitalization, Other)
  Sender: FDA-Public Use
  Company Number: US-ELI_LILLY_AND_COMPANY-US201004003881

PATIENT
  Sex: Female
  Weight: 83.9 kg

DRUGS (2)
  1. ZYPREXA [Suspect]
  2. ZIPRASIDONE HCL [Concomitant]
     Indication: SCHIZOPHRENIA
     Dates: start: 20060206, end: 20060212

REACTIONS (5)
  - CARDIOMEGALY [None]
  - ELECTROCARDIOGRAM T WAVE ABNORMAL [None]
  - MENINGIOMA [None]
  - METABOLIC ENCEPHALOPATHY [None]
  - RED BLOOD CELL COUNT DECREASED [None]
